FAERS Safety Report 23293475 (Version 1)
Quarter: 2023Q4

REPORT INFORMATION
  Report Type: Spontaneous
  Country: US (occurrence: US)
  Receive Date: 20231213
  Receipt Date: 20231213
  Transmission Date: 20240110
  Serious: No
  Sender: FDA-Public Use
  Company Number: US-NOVOPROD-1061118

PATIENT
  Age: 59 Year
  Sex: Female

DRUGS (1)
  1. LEVEMIR [Suspect]
     Active Substance: INSULIN DETEMIR
     Indication: Product used for unknown indication
     Dosage: UNK
     Route: 058

REACTIONS (4)
  - Nausea [Recovered/Resolved]
  - Vomiting [Recovered/Resolved]
  - Injection site pain [Recovered/Resolved]
  - Device difficult to use [Unknown]

NARRATIVE: CASE EVENT DATE: 20230423
